FAERS Safety Report 8180922-9 (Version None)
Quarter: 2012Q1

REPORT INFORMATION
  Report Type: 
  Country: None (occurrence: None)
  Receive Date: 20120302
  Receipt Date: 20120227
  Transmission Date: 20120608
  Serious: Yes (Hospitalization)
  Sender: FDA-Public Use
  Company Number: DE-PFIZER INC-2012050837

PATIENT
  Age: 81 Year
  Sex: Male

DRUGS (9)
  1. NOVAMINOSULFON [Concomitant]
     Dosage: 3000 MG, UNK
     Dates: start: 20110923
  2. SUNITINIB MALATE [Suspect]
     Indication: RENAL CANCER METASTATIC
     Dosage: 37.5 MG, UNK
     Dates: start: 20111017
  3. PANTOPRAZOLE [Concomitant]
     Dosage: 20 MG, 2X/DAY
     Dates: start: 20110124
  4. ONDANSETRON [Concomitant]
     Dosage: 8 MG, UNK
     Dates: start: 20111128
  5. CARBIMAZOLE [Concomitant]
     Dosage: 5 MG, UNK
  6. DIGITOXIN [Concomitant]
     Dosage: 0.05 MG, UNK
     Dates: start: 20110804
  7. LEVODOPA BENSERAZIDE [Concomitant]
     Dosage: 100/ 25 MG
     Dates: start: 20110102
  8. FUROSEMIDE [Concomitant]
     Dosage: 20 MG, UNK
     Dates: start: 20120216
  9. METOPROLOL [Concomitant]
     Dosage: 47.5 MG, UNK
     Dates: start: 20110804

REACTIONS (1)
  - PNEUMONIA [None]
